FAERS Safety Report 5741193-3 (Version None)
Quarter: 2008Q2

REPORT INFORMATION
  Report Type: 
  Country: None (occurrence: None)
  Receive Date: 20080514
  Receipt Date: 20080501
  Transmission Date: 20081010
  Serious: Yes (Hospitalization)
  Sender: FDA-Public Use
  Company Number: 2008AL003030

PATIENT
  Age: 59 Year
  Sex: Female

DRUGS (1)
  1. DIGOXIN [Suspect]
     Indication: CARDIAC FAILURE CONGESTIVE

REACTIONS (4)
  - ASTHENIA [None]
  - NAUSEA [None]
  - ORTHOPNOEA [None]
  - THERAPEUTIC AGENT TOXICITY [None]
